FAERS Safety Report 7910905-2 (Version None)
Quarter: 2011Q4

REPORT INFORMATION
  Report Type: 
  Country: None (occurrence: None)
  Receive Date: 20111114
  Receipt Date: 20111108
  Transmission Date: 20120403
  Serious: No
  Sender: FDA-Public Use
  Company Number: US-BIOGENIDEC-2011BI037888

PATIENT
  Sex: Female

DRUGS (1)
  1. TYSABRI [Suspect]
     Indication: MULTIPLE SCLEROSIS
     Route: 042
     Dates: start: 20110902, end: 20110930

REACTIONS (5)
  - CHEST DISCOMFORT [None]
  - NEUTRALISING ANTIBODIES POSITIVE [None]
  - HEART RATE INCREASED [None]
  - ANXIETY [None]
  - INFUSION RELATED REACTION [None]
